FAERS Safety Report 7166890-7 (Version None)
Quarter: 2010Q4

REPORT INFORMATION
  Report Type: 
  Country: None (occurrence: None)
  Receive Date: 20101213
  Receipt Date: 20101213
  Transmission Date: 20110411
  Serious: No
  Sender: FDA-Public Use
  Company Number: None

PATIENT
  Age: 25 Year
  Sex: Female

DRUGS (1)
  1. BUPROPION XL 300MG [Suspect]
     Dosage: ONCE P.O. QD
     Route: 048
     Dates: start: 20101001

REACTIONS (4)
  - DYSARTHRIA [None]
  - IRRITABILITY [None]
  - MEMORY IMPAIRMENT [None]
  - MIGRAINE [None]
